FAERS Safety Report 7909684-4 (Version None)
Quarter: 2011Q4

REPORT INFORMATION
  Report Type: 
  Country: None (occurrence: None)
  Receive Date: 20111111
  Receipt Date: 20111102
  Transmission Date: 20120403
  Serious: Yes (Hospitalization)
  Sender: FDA-Public Use
  Company Number: GB-GLAXOSMITHKLINE-B0756481A

PATIENT
  Sex: Male

DRUGS (4)
  1. PREGABALIN [Concomitant]
     Indication: EPILEPSY
     Dosage: 600MG PER DAY
     Route: 048
     Dates: start: 20060101
  2. CLOBAZAM [Concomitant]
     Indication: EPILEPSY
     Dosage: 10MG PER DAY
     Route: 048
     Dates: start: 20060101
  3. LAMOTRIGINE [Concomitant]
     Indication: EPILEPSY
     Dosage: 400MG PER DAY
     Route: 048
     Dates: start: 20060101
  4. TROBALT [Suspect]
     Indication: EPILEPSY
     Dosage: 100MG PER DAY
     Route: 048
     Dates: start: 20111012

REACTIONS (7)
  - PSYCHOTIC DISORDER [None]
  - PERIPHERAL COLDNESS [None]
  - CHILLS [None]
  - OFF LABEL USE [None]
  - PERIPHERAL CIRCULATORY FAILURE [None]
  - CONVULSION [None]
  - FEELING HOT [None]
